FAERS Safety Report 8935086 (Version 2)
Quarter: 2012Q4

REPORT INFORMATION
  Report Type: 
  Country: JP (occurrence: JP)
  Receive Date: 20121129
  Receipt Date: 20121220
  Transmission Date: 20130627
  Serious: Yes (Other)
  Sender: FDA-Public Use
  Company Number: JP-AMGEN-JPNCT2012076773

PATIENT
  Age: 66 Year
  Sex: Female
  Weight: 62 kg

DRUGS (12)
  1. ROMIPLOSTIM - KHK [Suspect]
     Indication: IDIOPATHIC THROMBOCYTOPENIC PURPURA
     Dosage: 1 mug/kg, qwk
     Route: 058
     Dates: start: 20110509, end: 20121010
  2. ROMIPLOSTIM - KHK [Suspect]
     Dosage: 2 mug/kg, qwk
     Route: 058
     Dates: start: 20110523
  3. ROMIPLOSTIM - KHK [Suspect]
     Dosage: 3 mug/kg, qwk
     Route: 058
     Dates: start: 20110606
  4. ROMIPLOSTIM - KHK [Suspect]
     Dosage: 4 mug/kg, qwk
     Route: 058
     Dates: start: 20110620, end: 20110711
  5. ROMIPLOSTIM - KHK [Suspect]
     Dosage: 4 mug/kg, qwk
     Route: 058
     Dates: start: 20110725
  6. ROMIPLOSTIM - KHK [Suspect]
     Dosage: 4 mug/kg, qwk
     Route: 058
     Dates: start: 20120528
  7. ROMIPLOSTIM - KHK [Suspect]
     Dosage: 4 mug/kg, qd
     Route: 058
     Dates: start: 20120628
  8. ROMIPLOSTIM - KHK [Suspect]
     Dosage: 4 mug/kg, qwk
     Route: 058
     Dates: start: 20120702, end: 20121010
  9. PREDNISOLONE [Concomitant]
     Indication: IDIOPATHIC THROMBOCYTOPENIC PURPURA
     Dosage: UNK
     Route: 048
     Dates: start: 20110426, end: 20110509
  10. AMARYL [Concomitant]
     Indication: DIABETES MELLITUS
     Dosage: UNK
     Route: 048
  11. AMLODIPINE [Concomitant]
     Indication: HYPERTENSION
     Dosage: UNK
     Route: 048
  12. THYRADIN S [Concomitant]
     Indication: HYPOTHYROIDISM
     Dosage: 50 mug, UNK
     Route: 048

REACTIONS (2)
  - Hypothyroidism [Recovering/Resolving]
  - Thrombocytopenia [Recovered/Resolved]
